FAERS Safety Report 7122792-3 (Version None)
Quarter: 2010Q4

REPORT INFORMATION
  Report Type: 
  Country: None (occurrence: None)
  Receive Date: 20101124
  Receipt Date: 20101111
  Transmission Date: 20110411
  Serious: Yes (Disabling)
  Sender: FDA-Public Use
  Company Number: GB-GENENTECH-309174

PATIENT
  Sex: Male

DRUGS (14)
  1. RITUXIMAB [Suspect]
     Indication: B-CELL LYMPHOMA
     Dosage: 700 MG, UNK
     Route: 042
     Dates: start: 20100401, end: 20100603
  2. RITUXIMAB [Suspect]
     Dosage: 800 MG, UNK
     Route: 042
     Dates: start: 20100625
  3. RITUXIMAB [Suspect]
     Dosage: 800 MG, X1
     Route: 042
     Dates: start: 20100915, end: 20100915
  4. FLUDARABINE [Suspect]
     Indication: B-CELL LYMPHOMA
     Dosage: UNK
     Route: 065
  5. CYCLOPHOSPHAMIDE [Suspect]
     Indication: B-CELL LYMPHOMA
     Dosage: UNK
     Route: 065
  6. CHLORHEXIDINE GLUCONATE [Suspect]
     Indication: THERAPEUTIC PROCEDURE
     Dosage: 10 ML, QD
     Route: 065
     Dates: start: 20100401
  7. PERINDOPRIL ERBUMINE [Concomitant]
     Indication: HYPERTENSION
     Dosage: 4 MG, QAM
     Route: 048
  8. DIPYRIDAMOLE [Concomitant]
     Indication: ANTICOAGULANT THERAPY
     Dosage: 200 MG, BID
     Route: 048
  9. ATORVASTATIN [Concomitant]
     Indication: PRODUCT USED FOR UNKNOWN INDICATION
     Dosage: 40 MG, QAM
     Route: 048
  10. INDAPAMIDE [Concomitant]
     Indication: HYPERTENSION
     Dosage: 2.5 MG, QAM
     Route: 048
  11. ONDANSETRON [Concomitant]
     Indication: ANTIEMETIC SUPPORTIVE CARE
     Dosage: 8 MG, QAM
     Route: 048
     Dates: start: 20100915, end: 20100915
  12. CHLORPHENIRAMINE MALEATE [Concomitant]
     Indication: ANTIALLERGIC THERAPY
     Dosage: 4 MG, QAM
     Route: 048
     Dates: start: 20100915, end: 20100915
  13. PARACETAMOL [Concomitant]
     Indication: ANALGESIC THERAPY
     Dosage: 1000 MG, QAM
     Route: 048
     Dates: start: 20100915, end: 20100915
  14. COTRIMOXAZOLE [Concomitant]
     Indication: ANTI-INFECTIVE THERAPY
     Dosage: 480 MG, BID
     Route: 048
     Dates: start: 20100915, end: 20101006

REACTIONS (1)
  - TYPE 2 DIABETES MELLITUS [None]
